FAERS Safety Report 5091702-5 (Version None)
Quarter: 2006Q3

REPORT INFORMATION
  Report Type: 
  Country: None (occurrence: None)
  Receive Date: 20060829
  Receipt Date: 20060824
  Transmission Date: 20061208
  Serious: Yes (Death)
  Sender: FDA-Public Use
  Company Number: JP-JNJFOC-20060805904

PATIENT
  Sex: Female
  Weight: 54 kg

DRUGS (15)
  1. REMICADE [Suspect]
     Route: 042
  2. REMICADE [Suspect]
     Route: 042
  3. REMICADE [Suspect]
     Indication: FISTULA
     Route: 042
  4. REMICADE [Suspect]
     Indication: CROHN'S DISEASE
     Route: 042
  5. MESALAZINE [Concomitant]
     Indication: CROHN'S DISEASE
     Route: 048
  6. LASIX [Concomitant]
     Route: 048
  7. GASTER D [Concomitant]
     Route: 048
  8. EBRANTIL [Concomitant]
     Route: 048
  9. GANATON [Concomitant]
     Route: 048
  10. GASCON [Concomitant]
     Route: 048
  11. TOUGHMAC E [Concomitant]
     Route: 048
  12. ASPARA K [Concomitant]
     Route: 048
  13. ROCALTOROL [Concomitant]
     Route: 048
  14. GLAKAY [Concomitant]
     Route: 048
  15. CIPROFLOXACIN [Concomitant]
     Indication: CROHN'S DISEASE
     Route: 048

REACTIONS (1)
  - MALIGNANT ASCITES [None]
